FAERS Safety Report 5339675-1 (Version None)
Quarter: 2007Q2

REPORT INFORMATION
  Report Type: 
  Country: None (occurrence: None)
  Receive Date: 20070404
  Receipt Date: 20060926
  Transmission Date: 20071010
  Serious: Yes (Other)
  Sender: FDA-Public Use
  Company Number: 2006116428

PATIENT

DRUGS (1)
  1. GEODON [Suspect]

REACTIONS (2)
  - EXTRAPYRAMIDAL DISORDER [None]
  - EYE DISORDER [None]
